FAERS Safety Report 13259778 (Version 1)
Quarter: 2017Q1

REPORT INFORMATION
  Report Type: Spontaneous
  Country: US (occurrence: US)
  Receive Date: 20170221
  Receipt Date: 20170221
  Transmission Date: 20170428
  Serious: Yes (Hospitalization, Other)
  Sender: FDA-Public Use
  Company Number: None

PATIENT
  Age: 84 Year
  Sex: Female

DRUGS (10)
  1. FOLIC ACID. [Concomitant]
     Active Substance: FOLIC ACID
  2. HEPARIN [Concomitant]
     Active Substance: HEPARIN SODIUM
  3. LACTULOSE. [Concomitant]
     Active Substance: LACTULOSE
  4. HYDROMORPHONE [Suspect]
     Active Substance: HYDROMORPHONE
     Indication: AGITATION
     Dosage: 0.5 MG 4 TIMES A DAY INTRAVENOUS (NOT OTHERWISE SPECIFIED)
     Route: 042
     Dates: start: 20161101, end: 20161102
  5. DOCUSATE [Concomitant]
     Active Substance: DOCUSATE
  6. LEVETIRACETAM. [Concomitant]
     Active Substance: LEVETIRACETAM
  7. METOPROLOL. [Concomitant]
     Active Substance: METOPROLOL
  8. FAMOTIDINE. [Concomitant]
     Active Substance: FAMOTIDINE
  9. VALPROIC ACID. [Concomitant]
     Active Substance: VALPROIC ACID
  10. HYDROMORPHONE [Suspect]
     Active Substance: HYDROMORPHONE
     Indication: PAIN
     Dosage: 0.5 MG 4 TIMES A DAY INTRAVENOUS (NOT OTHERWISE SPECIFIED)
     Route: 042
     Dates: start: 20161101, end: 20161102

REACTIONS (1)
  - Angioedema [None]

NARRATIVE: CASE EVENT DATE: 20161102
